FAERS Safety Report 7603051-9 (Version None)
Quarter: 2011Q3

REPORT INFORMATION
  Report Type: 
  Country: None (occurrence: None)
  Receive Date: 20110712
  Receipt Date: 20110712
  Transmission Date: 20111222
  Serious: Yes (Death)
  Sender: FDA-Public Use
  Company Number: None

PATIENT
  Age: 55 Year
  Sex: Female
  Weight: 84 kg

DRUGS (1)
  1. TNKASE [Suspect]
     Indication: MYOCARDIAL INFARCTION
     Dosage: 50MG
     Route: 040
     Dates: start: 20110510, end: 20110510

REACTIONS (9)
  - UNRESPONSIVE TO STIMULI [None]
  - HYPERHIDROSIS [None]
  - HYPERTENSION [None]
  - CHEST PAIN [None]
  - MYOCARDIAL INFARCTION [None]
  - NAUSEA [None]
  - VOMITING [None]
  - HEADACHE [None]
  - CEREBRAL HAEMORRHAGE [None]
